FAERS Safety Report 4408422-X (Version None)
Quarter: 2004Q3

REPORT INFORMATION
  Report Type: 
  Country: None (occurrence: None)
  Receive Date: 20040726
  Receipt Date: 20040726
  Transmission Date: 20050211
  Serious: Yes (Other)
  Sender: FDA-Public Use
  Company Number: None

PATIENT
  Sex: Female
  Weight: 66.6788 kg

DRUGS (2)
  1. SPIRONOLACTONE [Suspect]
     Indication: ANDROGENS INCREASED
     Dosage: 100 MGMPO BID
     Route: 048
     Dates: start: 20040709
  2. PAXIL [Concomitant]

REACTIONS (6)
  - ABDOMINAL DISTENSION [None]
  - ABDOMINAL PAIN UPPER [None]
  - CONFUSIONAL STATE [None]
  - HEADACHE [None]
  - NAUSEA [None]
  - PARAESTHESIA [None]
